FAERS Safety Report 9276442 (Version 1)
Quarter: 2013Q2

REPORT INFORMATION
  Report Type: Spontaneous
  Country: US (occurrence: US)
  Receive Date: 20130507
  Receipt Date: 20130507
  Transmission Date: 20140414
  Serious: No
  Sender: FDA-Public Use
  Company Number: US-PFIZER INC-2013140141

PATIENT
  Sex: Female

DRUGS (2)
  1. ALPRAZOLAM [Suspect]
     Indication: PANIC DISORDER
     Dosage: 1 MG, 6X/DAY
     Route: 048
     Dates: end: 20130503
  2. AMITRIPTYLINE [Concomitant]
     Dosage: UNK

REACTIONS (7)
  - Palpitations [Unknown]
  - Vision blurred [Unknown]
  - Nausea [Unknown]
  - Dizziness [Unknown]
  - Vomiting [Unknown]
  - Dry mouth [Unknown]
  - Malaise [Unknown]
